FAERS Safety Report 8138521-0 (Version None)
Quarter: 2012Q1

REPORT INFORMATION
  Report Type: 
  Country: None (occurrence: None)
  Receive Date: 20120215
  Receipt Date: 20120208
  Transmission Date: 20120608
  Serious: Yes (Hospitalization, Other)
  Sender: FDA-Public Use
  Company Number: FR-BAYER-2011-120629

PATIENT
  Age: 63 Year
  Sex: Female
  Weight: 90 kg

DRUGS (10)
  1. MEDROL [Concomitant]
     Indication: ALLERGY PROPHYLAXIS
     Dosage: 2 DF, EVENING
     Dates: start: 20111212, end: 20111212
  2. MEDROL [Concomitant]
     Dosage: 2 DF, OM
     Dates: start: 20111213, end: 20111213
  3. DESLORATADINE [Concomitant]
     Indication: ALLERGY PROPHYLAXIS
     Dosage: OM
     Dates: start: 20111211, end: 20111213
  4. ATARAX [Concomitant]
     Indication: ALLERGY PROPHYLAXIS
  5. XANAX [Concomitant]
     Indication: ALLERGY PROPHYLAXIS
     Dosage: EVENING
     Dates: start: 20111210, end: 20111212
  6. METFORMIN HCL [Concomitant]
     Dosage: UNK
     Route: 048
     Dates: end: 20111211
  7. ULTRAVIST 150 [Suspect]
     Indication: COMPUTERISED TOMOGRAM
  8. INSULIN INJECTION [Concomitant]
     Indication: DIABETES MELLITUS
     Dosage: UNK
  9. GLUCAGON [Concomitant]
  10. ULTRAVIST 150 [Suspect]
     Indication: ANGIOGRAM
     Dosage: 80 ML, UNK
     Route: 042
     Dates: start: 20111213, end: 20111213

REACTIONS (4)
  - COUGH [None]
  - BLOOD GLUCOSE FLUCTUATION [None]
  - OROPHARYNGEAL DISCOMFORT [None]
  - URTICARIA [None]
